FAERS Safety Report 7227923-2 (Version None)
Quarter: 2011Q1

REPORT INFORMATION
  Report Type: 
  Country: None (occurrence: None)
  Receive Date: 20110114
  Receipt Date: 20110104
  Transmission Date: 20110831
  Serious: Yes (Hospitalization, Other)
  Sender: FDA-Public Use
  Company Number: US-EISAI INC.-E2020-08339-SOL-US

PATIENT
  Sex: Female

DRUGS (10)
  1. PROVIGIL [Concomitant]
  2. AMBIEN [Concomitant]
  3. ARICEPT [Suspect]
     Dosage: UNKNOWN
     Route: 048
     Dates: start: 20101101, end: 20101128
  4. ALEVE [Concomitant]
  5. CARDIAC THERAPY [Concomitant]
     Dates: end: 20101129
  6. ARICEPT [Suspect]
     Dosage: SWALLOWED ALL HER PILLS
     Route: 048
     Dates: start: 20101129
  7. CELEXA [Concomitant]
  8. NAMENDA [Concomitant]
  9. OXYBUTYNIN [Concomitant]
  10. INTERFERON BETA-1B [Suspect]
     Indication: MULTIPLE SCLEROSIS
     Dosage: 8 MIU
     Route: 058
     Dates: start: 20100722

REACTIONS (2)
  - SUICIDE ATTEMPT [None]
  - DEPRESSION [None]
